FAERS Safety Report 5581494-5 (Version None)
Quarter: 2008Q1

REPORT INFORMATION
  Report Type: 
  Country: None (occurrence: None)
  Receive Date: 20080103
  Receipt Date: 20080103
  Transmission Date: 20080703
  Serious: Yes (Other)
  Sender: FDA-Public Use
  Company Number: None

PATIENT
  Age: 48 Year
  Sex: Female
  Weight: 92.5338 kg

DRUGS (1)
  1. COMPAZINE [Suspect]

REACTIONS (6)
  - DISCOMFORT [None]
  - FEAR [None]
  - FEELING ABNORMAL [None]
  - PANIC ATTACK [None]
  - RESTLESS LEGS SYNDROME [None]
  - TREMOR [None]
